FAERS Safety Report 12614143 (Version 1)
Quarter: 2016Q3

REPORT INFORMATION
  Report Type: Spontaneous
  Country: None (occurrence: None)
  Receive Date: 20160801
  Receipt Date: 20160801
  Transmission Date: 20161109
  Serious: Yes (Hospitalization)
  Sender: FDA-Public Use
  Company Number: None

PATIENT
  Age: 52 Year
  Sex: Male
  Weight: 92 kg

DRUGS (1)
  1. AGGRASTAT [Suspect]
     Active Substance: TIROFIBAN HYDROCHLORIDE
     Indication: PLATELET DISORDER
     Dosage: 12.5 MG 16.56 ML/HOUR INTRAVENOUS
     Route: 042

REACTIONS (3)
  - Gastrointestinal haemorrhage [None]
  - Wrong technique in product usage process [None]
  - Incorrect drug administration duration [None]

NARRATIVE: CASE EVENT DATE: 20160728
